FAERS Safety Report 8595959-5 (Version None)
Quarter: 2012Q3

REPORT INFORMATION
  Report Type: 
  Country: None (occurrence: None)
  Receive Date: 20120815
  Receipt Date: 19950324
  Transmission Date: 20120928
  Serious: Yes (Hospitalization)
  Sender: FDA-Public Use
  Company Number: US-ROCHE-1100884

PATIENT
  Sex: Female

DRUGS (5)
  1. ACTIVASE [Suspect]
     Indication: ACUTE MYOCARDIAL INFARCTION
     Dosage: 50 MG OVER 30 MINS AND REMAINING OVER 2 HOURS
     Route: 040
  2. NITROGLYCERIN [Concomitant]
  3. ULTRALENTE [Concomitant]
  4. HUMAN INSULIN [Concomitant]
  5. HEPARIN [Concomitant]

REACTIONS (3)
  - NAUSEA [None]
  - CHEST DISCOMFORT [None]
  - EPIGASTRIC DISCOMFORT [None]
